FAERS Safety Report 8598095-7 (Version None)
Quarter: 2012Q3

REPORT INFORMATION
  Report Type: 
  Country: None (occurrence: None)
  Receive Date: 20120802
  Receipt Date: 20120718
  Transmission Date: 20120928
  Serious: Yes (Other)
  Sender: FDA-Public Use
  Company Number: DSU-2012-05784

PATIENT
  Age: 74 Year
  Sex: Female

DRUGS (1)
  1. AZOR [Suspect]
     Indication: HYPERTENSION
     Dosage: PER ORAL
     Route: 048

REACTIONS (1)
  - CATARACT [None]
